FAERS Safety Report 19439458 (Version 2)
Quarter: 2021Q3

REPORT INFORMATION
  Report Type: Spontaneous
  Country: DE (occurrence: DE)
  Receive Date: 20210619
  Receipt Date: 20210702
  Transmission Date: 20211014
  Serious: Yes (Hospitalization, Other)
  Sender: FDA-Public Use
  Company Number: DE-ACCORD-228788

PATIENT
  Age: 47 Year
  Sex: Male

DRUGS (4)
  1. CISPLATIN. [Suspect]
     Active Substance: CISPLATIN
     Indication: TESTICULAR GERM CELL TUMOUR
     Dosage: ON DAYS 1?5 3 CYCLES
     Dates: start: 2020, end: 2020
  2. ETOPOSIDE. [Suspect]
     Active Substance: ETOPOSIDE
     Indication: TESTICULAR GERM CELL TUMOUR
     Dosage: ON DAYS 1?5 3 CYCLES
     Dates: start: 2020, end: 2020
  3. BLEOMYCIN [Suspect]
     Active Substance: BLEOMYCIN SULFATE
     Indication: TESTICULAR GERM CELL TUMOUR
     Dosage: ON DAYS 1, 8 AND 15
     Dates: start: 2020, end: 2020
  4. TINZAPARIN/TINZAPARIN SODIUM [Concomitant]
     Active Substance: TINZAPARIN SODIUM
     Indication: ANTICOAGULANT THERAPY
     Dates: start: 202003

REACTIONS (3)
  - Lung diffusion test decreased [Unknown]
  - Hypoacusis [Recovering/Resolving]
  - Haematotoxicity [Unknown]
